FAERS Safety Report 7541146-9 (Version None)
Quarter: 2011Q2

REPORT INFORMATION
  Report Type: 
  Country: None (occurrence: None)
  Receive Date: 20110610
  Receipt Date: 20110531
  Transmission Date: 20111010
  Serious: Yes (Hospitalization)
  Sender: FDA-Public Use
  Company Number: US-AMGEN-USASP2011014165

PATIENT
  Age: 52 Year
  Sex: Female

DRUGS (2)
  1. ENBREL [Suspect]
     Indication: RHEUMATOID ARTHRITIS
     Dosage: 50 MG, QWK
     Dates: start: 20100504, end: 20110101
  2. METHOTREXATE [Concomitant]

REACTIONS (5)
  - FALL [None]
  - WRIST FRACTURE [None]
  - PAIN [None]
  - INJECTION SITE PAIN [None]
  - BRONCHITIS [None]
